FAERS Safety Report 5670990-8 (Version None)
Quarter: 2008Q1

REPORT INFORMATION
  Report Type: 
  Country: None (occurrence: None)
  Receive Date: 20080312
  Receipt Date: 20080306
  Transmission Date: 20080703
  Serious: Yes (Other)
  Sender: FDA-Public Use
  Company Number: CHPA2008US04188

PATIENT
  Age: 78 Year
  Sex: Female

DRUGS (5)
  1. BENEFIBER PLUS CALCIUM WITH WHEAT DEXRIN (NCH) (CALCIUM CARBONATE, WHE [Suspect]
     Indication: NUTRITIONAL SUPPORT
     Dosage: 2 TSP, ONCE/SINGLE, ORAL
     Route: 048
     Dates: start: 20080306
  2. BENEFIBER UNKNOWN (NCH) (UNKNOWN) UNKNOWN [Suspect]
     Indication: NUTRITIONAL SUPPORT
     Dosage: ORAL
     Route: 048
  3. PREDNISONE TAB [Concomitant]
  4. METOPROLOL TARTRATE [Concomitant]
  5. ANTI-DIABETICS (NO INGREDIENTS/SUBSTANCES) [Concomitant]

REACTIONS (1)
  - CEREBROVASCULAR ACCIDENT [None]
